FAERS Safety Report 9328107 (Version 1)
Quarter: 2013Q2

REPORT INFORMATION
  Report Type: Spontaneous
  Country: US (occurrence: US)
  Receive Date: 20130604
  Receipt Date: 20130604
  Transmission Date: 20140414
  Serious: No
  Sender: FDA-Public Use
  Company Number: US-SANOFI-AVENTIS-2012SA034983

PATIENT
  Age: 75 Year
  Sex: Male

DRUGS (6)
  1. LANTUS [Suspect]
     Indication: TYPE 2 DIABETES MELLITUS
     Dosage: DOSE:30 UNIT(S)
     Route: 058
     Dates: start: 20101015
  2. SOLOSTAR [Suspect]
     Indication: TYPE 2 DIABETES MELLITUS
     Dates: start: 2011
  3. METFORMIN [Concomitant]
  4. GLIPIZIDE [Concomitant]
  5. LISINOPRIL [Concomitant]
  6. LOVASTATIN [Concomitant]

REACTIONS (1)
  - Visual impairment [Not Recovered/Not Resolved]
